FAERS Safety Report 7399179-1 (Version None)
Quarter: 2011Q1

REPORT INFORMATION
  Report Type: 
  Country: None (occurrence: None)
  Receive Date: 20110301
  Receipt Date: 20100924
  Transmission Date: 20110831
  Serious: Yes (Death)
  Sender: FDA-Public Use
  Company Number: RB-09489-2010

PATIENT
  Sex: Male

DRUGS (14)
  1. SUBOXONE [Suspect]
     Indication: PAIN
     Dosage: (8 MG QID SUBLINGUAL)
     Route: 060
     Dates: start: 20090201, end: 20100301
  2. AMPHETAMINE ASP AMPHETAMINE SULF DEXTROAMPHET SACCHARATE + DEXTR SULF [Suspect]
     Indication: PRODUCT USED FOR UNKNOWN INDICATION
  3. HYDROCODONE [Suspect]
     Indication: PRODUCT USED FOR UNKNOWN INDICATION
     Dates: end: 20100509
  4. MEPROBAMATE [Suspect]
     Indication: PRODUCT USED FOR UNKNOWN INDICATION
  5. CLONAZEPAM [Suspect]
     Indication: PRODUCT USED FOR UNKNOWN INDICATION
  6. ALPRAZOLAM [Suspect]
     Indication: PRODUCT USED FOR UNKNOWN INDICATION
     Dates: end: 20100509
  7. ACETAMINOPHEN [Suspect]
     Indication: PRODUCT USED FOR UNKNOWN INDICATION
  8. CAFFEINE (NONE) [Suspect]
     Indication: PRODUCT USED FOR UNKNOWN INDICATION
  9. CARISOPRODOL [Suspect]
     Indication: PRODUCT USED FOR UNKNOWN INDICATION
  10. SUBUTEX [Suspect]
     Indication: PAIN
     Dosage: (8 MG QID SUBLINGUAL)
     Route: 060
     Dates: start: 20100301, end: 20100509
  11. ACETONE (NONE) [Suspect]
     Indication: PRODUCT USED FOR UNKNOWN INDICATION
  12. PHENYLPROPANOLAMINE (NONE) [Suspect]
     Indication: PRODUCT USED FOR UNKNOWN INDICATION
  13. MORPHINE [Suspect]
     Indication: PRODUCT USED FOR UNKNOWN INDICATION
  14. NICOTINE [Suspect]
     Indication: PRODUCT USED FOR UNKNOWN INDICATION

REACTIONS (3)
  - DEPRESSION [None]
  - ACCIDENTAL OVERDOSE [None]
  - TOXICITY TO VARIOUS AGENTS [None]
